FAERS Safety Report 6981219-2 (Version None)
Quarter: 2010Q3

REPORT INFORMATION
  Report Type: 
  Country: None (occurrence: None)
  Receive Date: 20100914
  Receipt Date: 20100908
  Transmission Date: 20110219
  Serious: No
  Sender: FDA-Public Use
  Company Number: US-PFIZER INC-2010114390

PATIENT
  Sex: Female
  Weight: 150 kg

DRUGS (2)
  1. ZYVOX [Suspect]
     Indication: ENDOCARDITIS ENTEROCOCCAL
     Dosage: TWO TIMES A DAY
     Route: 042
     Dates: start: 20100810, end: 20100820
  2. DACTINOMYCIN [Suspect]
     Dosage: UNK

REACTIONS (1)
  - DRUG RESISTANCE [None]
